FAERS Safety Report 4718556-8 (Version None)
Quarter: 2005Q3

REPORT INFORMATION
  Report Type: 
  Country: None (occurrence: None)
  Receive Date: 20050720
  Receipt Date: 20050715
  Transmission Date: 20060218
  Serious: Yes (Death)
  Sender: FDA-Public Use
  Company Number: 200512100JP

PATIENT
  Age: 58 Year
  Sex: Male
  Weight: 51.3 kg

DRUGS (13)
  1. TAXOTERE [Suspect]
     Indication: DISEASE RECURRENCE
     Route: 041
     Dates: start: 20050524, end: 20050524
  2. TAXOTERE [Suspect]
     Indication: LUNG NEOPLASM MALIGNANT
     Route: 041
     Dates: start: 20050524, end: 20050524
  3. FLORID [Concomitant]
  4. OXYCONTIN [Concomitant]
  5. DECADRON [Concomitant]
  6. VOLTAREN [Concomitant]
  7. LENDORMIN [Concomitant]
  8. LOXONIN [Concomitant]
  9. CYTOTEC [Concomitant]
  10. MAGLAX [Concomitant]
  11. ADONA [Concomitant]
  12. TRANSAMIN [Concomitant]
  13. KYTRIL [Concomitant]

REACTIONS (1)
  - INTERSTITIAL LUNG DISEASE [None]
